FAERS Safety Report 14056870 (Version 2)
Quarter: 2017Q4

REPORT INFORMATION
  Report Type: Spontaneous
  Country: US (occurrence: US)
  Receive Date: 20171006
  Receipt Date: 20171015
  Transmission Date: 20180321
  Serious: Yes (Other)
  Sender: FDA-Public Use
  Company Number: US-BEH-2017084041

PATIENT
  Age: 54 Year
  Sex: Female

DRUGS (3)
  1. HIZENTRA [Suspect]
     Active Substance: HUMAN IMMUNOGLOBULIN G
     Dosage: SECOND INFUSION
     Route: 058
     Dates: start: 201709
  2. HIZENTRA [Suspect]
     Active Substance: HUMAN IMMUNOGLOBULIN G
     Dosage: THIRD INFUSION
     Route: 058
     Dates: start: 201709
  3. HIZENTRA [Suspect]
     Active Substance: HUMAN IMMUNOGLOBULIN G
     Indication: IMMUNODEFICIENCY COMMON VARIABLE
     Dosage: 9 G, UNK
     Route: 058
     Dates: start: 20170906

REACTIONS (2)
  - Back pain [Unknown]
  - Haematuria [Unknown]

NARRATIVE: CASE EVENT DATE: 20170929
